FAERS Safety Report 4353932-7 (Version None)
Quarter: 2004Q2

REPORT INFORMATION
  Report Type: 
  Country: None (occurrence: None)
  Receive Date: 20040506
  Receipt Date: 20040122
  Transmission Date: 20050107
  Serious: No
  Sender: FDA-Public Use
  Company Number: US-GLAXOSMITHKLINE-A0494690A

PATIENT
  Age: 41 Year
  Sex: Male

DRUGS (4)
  1. AVANDAMET [Suspect]
     Route: 048
  2. COZAAR [Concomitant]
  3. ZOCOR [Concomitant]
  4. ASPIRIN [Concomitant]

REACTIONS (1)
  - GASTROOESOPHAGEAL REFLUX DISEASE [None]
